FAERS Safety Report 12931229 (Version 1)
Quarter: 2016Q4

REPORT INFORMATION
  Report Type: Spontaneous
  Country: US (occurrence: US)
  Receive Date: 20161110
  Receipt Date: 20161110
  Transmission Date: 20170207
  Serious: No
  Sender: FDA-Public Use
  Company Number: US-JAZZ-2016-US-018153

PATIENT
  Sex: Male

DRUGS (20)
  1. XYREM [Suspect]
     Active Substance: SODIUM OXYBATE
     Indication: NARCOLEPSY
     Dosage: 1.5 G, BID
     Route: 048
     Dates: start: 201212, end: 201212
  2. NUVIGIL [Concomitant]
     Active Substance: ARMODAFINIL
  3. CYMBALTA [Concomitant]
     Active Substance: DULOXETINE HYDROCHLORIDE
  4. VITAMIN A                          /00056001/ [Concomitant]
     Active Substance: RETINOL
  5. XYREM [Suspect]
     Active Substance: SODIUM OXYBATE
     Indication: CATAPLEXY
     Dosage: DOSE ADJUSTMENTS
     Route: 048
     Dates: start: 201212, end: 201412
  6. LIDOCAINE HCL [Concomitant]
     Active Substance: LIDOCAINE HYDROCHLORIDE
  7. SUBOXONE [Concomitant]
     Active Substance: BUPRENORPHINE HYDROCHLORIDE\NALOXONE HYDROCHLORIDE
  8. PERCOCET                           /00446701/ [Concomitant]
     Active Substance: ACETAMINOPHEN\OXYCODONE HYDROCHLORIDE\OXYCODONE TEREPHTHALATE
  9. VITAMIN E                          /00110501/ [Concomitant]
     Active Substance: TOCOPHEROL
  10. VOLTAREN [Concomitant]
     Active Substance: DICLOFENAC SODIUM
  11. XYREM [Suspect]
     Active Substance: SODIUM OXYBATE
     Dosage: 3.5 G, BID
     Route: 048
     Dates: start: 201604
  12. GABAPENTIN. [Concomitant]
     Active Substance: GABAPENTIN
  13. OXCARBAZEPINE. [Concomitant]
     Active Substance: OXCARBAZEPINE
  14. ROBAXIN [Concomitant]
     Active Substance: METHOCARBAMOL
  15. GLUCOSAMINE + CHONDROITIN WITH MSM /05199601/ [Concomitant]
  16. LIDODERM [Concomitant]
     Active Substance: LIDOCAINE
  17. XYREM [Suspect]
     Active Substance: SODIUM OXYBATE
     Dosage: 3 G, BID
     Route: 048
     Dates: start: 201412, end: 2015
  18. MULTIVITAMIN AND MINERAL [Concomitant]
  19. TOPAMAX [Concomitant]
     Active Substance: TOPIRAMATE
  20. CRESTOR [Concomitant]
     Active Substance: ROSUVASTATIN CALCIUM

REACTIONS (4)
  - Malaise [Not Recovered/Not Resolved]
  - Cough [Not Recovered/Not Resolved]
  - Pain [Not Recovered/Not Resolved]
  - Upper respiratory tract congestion [Recovering/Resolving]
